FAERS Safety Report 20808282 (Version 1)
Quarter: 2022Q2

REPORT INFORMATION
  Report Type: Spontaneous
  Country: HR (occurrence: HR)
  Receive Date: 20220510
  Receipt Date: 20220510
  Transmission Date: 20220721
  Serious: Yes (Hospitalization)
  Sender: FDA-Public Use
  Company Number: None

PATIENT
  Age: 69 Year
  Sex: Female

DRUGS (3)
  1. PROPAFENONE [Suspect]
     Active Substance: PROPAFENONE
     Indication: Tachycardia
     Dosage: 300 MILLIGRAM, BID (0.5 DAY) (DOSAGE 1,0,1)
     Route: 048
     Dates: start: 202203, end: 202203
  2. NORMABEL [Concomitant]
     Active Substance: DIAZEPAM
     Dosage: 5 MILLIGRAM, PRN (AS NECESSARY)
     Route: 048
  3. EDOXABAN TOSYLATE [Concomitant]
     Active Substance: EDOXABAN TOSYLATE
     Dosage: 60 MILLIGRAM, QD
     Route: 048

REACTIONS (7)
  - Asthma [Recovered/Resolved with Sequelae]
  - Cough [Recovered/Resolved with Sequelae]
  - Blood pressure increased [Recovered/Resolved with Sequelae]
  - Dyspnoea [Recovered/Resolved with Sequelae]
  - Vomiting [Recovered/Resolved]
  - Chest pain [Recovered/Resolved with Sequelae]
  - Nausea [Recovered/Resolved]

NARRATIVE: CASE EVENT DATE: 20220301
